FAERS Safety Report 10866420 (Version 1)
Quarter: 2015Q1

REPORT INFORMATION
  Report Type: Spontaneous
  Country: US (occurrence: None)
  Receive Date: 20150220
  Receipt Date: 20150220
  Transmission Date: 20150721
  Serious: Yes (Other)
  Sender: FDA-Public Use
  Company Number: TIR-04258

PATIENT
  Age: 30 Year
  Sex: Male

DRUGS (1)
  1. LEVOTHYROXINE [Suspect]
     Active Substance: LEVOTHYROXINE
     Indication: AUTOIMMUNE THYROIDITIS

REACTIONS (2)
  - Glomerulonephritis membranous [None]
  - Glomerulonephritis rapidly progressive [None]

NARRATIVE: CASE EVENT DATE: 201408
